FAERS Safety Report 14818388 (Version 4)
Quarter: 2018Q2

REPORT INFORMATION
  Report Type: Spontaneous
  Country: SK (occurrence: SK)
  Receive Date: 20180427
  Receipt Date: 20180619
  Transmission Date: 20180711
  Serious: Yes (Other)
  Sender: FDA-Public Use
  Company Number: SK-ROCHE-2114564

PATIENT
  Age: 36 Year
  Sex: Male

DRUGS (8)
  1. CYTARABINE. [Suspect]
     Active Substance: CYTARABINE
     Indication: HODGKIN^S DISEASE
     Dosage: (PART OF DHAP CHEMOTHERAPY)
     Route: 065
     Dates: start: 201509, end: 201509
  2. RITUXIMAB. [Suspect]
     Active Substance: RITUXIMAB
     Route: 065
     Dates: start: 201505, end: 201506
  3. ETOPOSIDE. [Suspect]
     Active Substance: ETOPOSIDE
     Indication: HODGKIN^S DISEASE
     Dosage: UNK (PART OF BEEAM REGIMEN)
     Route: 065
     Dates: start: 201509, end: 201509
  4. BENDAMUSTINE [Suspect]
     Active Substance: BENDAMUSTINE
     Indication: HODGKIN^S DISEASE
     Dosage: UNK (PART OF BEEAM REGIMEN)
     Route: 042
     Dates: start: 201509, end: 201509
  5. DEXAMETHASONE. [Suspect]
     Active Substance: DEXAMETHASONE
     Indication: HODGKIN^S DISEASE
     Dosage: UNK (PART OF DHAP CHEMOTHERAPY)
     Route: 065
     Dates: start: 201509, end: 201509
  6. MELPHALAN. [Suspect]
     Active Substance: MELPHALAN
     Indication: HODGKIN^S DISEASE
     Dosage: UNK (PART OF BEEAM REGIMEN)
     Route: 065
     Dates: start: 201509, end: 201509
  7. RITUXIMAB. [Suspect]
     Active Substance: RITUXIMAB
     Indication: HODGKIN^S DISEASE
     Dosage: (PART OF DHAP CHEMOTHERAPY)
     Route: 065
     Dates: start: 201509, end: 201509
  8. CISPLATIN. [Suspect]
     Active Substance: CISPLATIN
     Indication: HODGKIN^S DISEASE
     Dosage: (PART OF DHAP CHEMOTHERAPY)
     Route: 065
     Dates: start: 201509, end: 201509

REACTIONS (3)
  - Neoplasm progression [Unknown]
  - Nephropathy [Unknown]
  - Renal impairment [Unknown]

NARRATIVE: CASE EVENT DATE: 201509
